FAERS Safety Report 8044106-7 (Version None)
Quarter: 2012Q1

REPORT INFORMATION
  Report Type: 
  Country: None (occurrence: None)
  Receive Date: 20120113
  Receipt Date: 20120103
  Transmission Date: 20120608
  Serious: Yes (Hospitalization, Other)
  Sender: FDA-Public Use
  Company Number: US-AMGEN-USASP2011066533

PATIENT
  Age: 46 Year
  Sex: Male

DRUGS (5)
  1. IODINE [Concomitant]
     Dosage: 500 MG, 2X/DAY
  2. FLEXERIL [Concomitant]
     Dosage: 10 MG AT NIGHT
  3. ENBREL [Suspect]
     Indication: ANKYLOSING SPONDYLITIS
     Dosage: 50 MG, WEEKLY
     Route: 058
     Dates: end: 20111001
  4. GABAPENTIN [Concomitant]
     Dosage: 300 MG, 3X/DAY
  5. PERCOCET [Concomitant]
     Dosage: 10/325 1 TABLET TID PRN

REACTIONS (2)
  - RETROPERITONEAL FIBROSIS [None]
  - NEPHROTIC SYNDROME [None]
